FAERS Safety Report 9633762 (Version 2)
Quarter: 2013Q4

REPORT INFORMATION
  Report Type: Spontaneous
  Country: US (occurrence: US)
  Receive Date: 20131021
  Receipt Date: 20131106
  Transmission Date: 20140711
  Serious: No
  Sender: FDA-Public Use
  Company Number: US-PFIZER INC-2013296820

PATIENT
  Age: 47 Year
  Sex: Female
  Weight: 75.74 kg

DRUGS (5)
  1. SUTENT [Suspect]
     Indication: NEOPLASM MALIGNANT
     Dosage: 50 MG, UNK
     Dates: start: 20130930
  2. TUMS [Concomitant]
     Dosage: UNK
  3. PROVERA [Concomitant]
     Dosage: UNK, 10 DAYS EACH MONTH
  4. BACTRIM [Concomitant]
     Indication: VAGINAL INFECTION
     Dosage: UNK
  5. MIRALAX [Concomitant]
     Indication: CONSTIPATION

REACTIONS (9)
  - Oral pain [Unknown]
  - Glossodynia [Unknown]
  - Constipation [Unknown]
  - Dyspepsia [Unknown]
  - Yellow skin [Not Recovered/Not Resolved]
  - Cough [Unknown]
  - Gastrooesophageal reflux disease [Unknown]
  - Dysphagia [Unknown]
  - Contusion [Unknown]
